FAERS Safety Report 19747901 (Version 1)
Quarter: 2021Q3

REPORT INFORMATION
  Report Type: Other
  Country: US (occurrence: US)
  Receive Date: 20210825
  Receipt Date: 20210825
  Transmission Date: 20211014
  Serious: No
  Sender: FDA-Public Use
  Company Number: US-SAGENT PHARMACEUTICALS-2021SAG001438

PATIENT

DRUGS (1)
  1. HEPARIN SODIUM. [Suspect]
     Active Substance: HEPARIN SODIUM
     Indication: PROPHYLAXIS
     Dosage: 10,000 UNIT PER 10 ML
     Dates: start: 20210623

REACTIONS (2)
  - Drug ineffective [Unknown]
  - Product measured potency issue [Unknown]

NARRATIVE: CASE EVENT DATE: 20210623
